FAERS Safety Report 16037894 (Version 1)
Quarter: 2019Q1

REPORT INFORMATION
  Report Type: Spontaneous
  Country: NL (occurrence: NL)
  Receive Date: 20190305
  Receipt Date: 20190305
  Transmission Date: 20190418
  Serious: Yes (Death)
  Sender: FDA-Public Use
  Company Number: NL-MYLANLABS-2019M1019020

PATIENT

DRUGS (1)
  1. ALPROSTADIL. [Suspect]
     Active Substance: ALPROSTADIL
     Indication: HYPOPLASTIC LEFT HEART SYNDROME
     Dosage: 0.1UG/KG PER MIN OVER PERIODS RANGING FROM 10 HOURS TO 3 DAYS
     Route: 041

REACTIONS (1)
  - Angiopathy [Fatal]
